FAERS Safety Report 23662741 (Version 1)
Quarter: 2024Q1

REPORT INFORMATION
  Report Type: Spontaneous
  Country: BR (occurrence: BR)
  Receive Date: 20240322
  Receipt Date: 20240322
  Transmission Date: 20240410
  Serious: Yes (Death, Life-Threatening, Hospitalization, Other)
  Sender: FDA-Public Use
  Company Number: BR-TEVA-VS-3171996

PATIENT
  Age: 50 Year
  Sex: Female
  Weight: 61 kg

DRUGS (3)
  1. CARBOPLATIN [Suspect]
     Active Substance: CARBOPLATIN
     Indication: Product used for unknown indication
     Dosage: CARBOPLATIN 421 MG: START AT 12:41 PM, END AT 1:41 PM, 450 MG WITH STABILITY OF 8 HOURS AT ROOM T...
     Route: 042
  2. PACLITAXEL [Suspect]
     Active Substance: PACLITAXEL
     Indication: Product used for unknown indication
     Dosage: 87 MG: START AT 9:40 AM, END 12:40 PM (DATES NOT SPECIFIED)
     Route: 042
  3. PACLITAXEL [Concomitant]
     Active Substance: PACLITAXEL

REACTIONS (5)
  - Neutropenia [Fatal]
  - Hyponatraemia [Unknown]
  - Depressed level of consciousness [Unknown]
  - Acute kidney injury [Unknown]
  - Pancytopenia [Unknown]

NARRATIVE: CASE EVENT DATE: 20231112
